FAERS Safety Report 13766983 (Version 2)
Quarter: 2017Q3

REPORT INFORMATION
  Report Type: Spontaneous
  Country: AT (occurrence: AT)
  Receive Date: 20170719
  Receipt Date: 20170901
  Transmission Date: 20171127
  Serious: Yes (Hospitalization, Other)
  Sender: FDA-Public Use
  Company Number: AT-009507513-1707AUT002900

PATIENT
  Age: 68 Year
  Sex: Female
  Weight: 58 kg

DRUGS (7)
  1. TEICOPLANIN [Concomitant]
     Active Substance: TEICOPLANIN
     Dosage: 800 MG, QD
     Route: 042
     Dates: start: 20160402, end: 20160416
  2. RIFADIN [Concomitant]
     Active Substance: RIFAMPIN
     Dosage: 450, BID
     Route: 048
     Dates: start: 20160404, end: 20160416
  3. MEROPENEM. [Concomitant]
     Active Substance: MEROPENEM
     Indication: ARTHRITIS INFECTIVE
     Dosage: DOSE: 3X1000, TOTAL DAILY DOSAGE 3.0
     Route: 042
     Dates: start: 20160426, end: 20160617
  4. FUCIDIN (FUSIDATE SODIUM) [Concomitant]
     Dosage: 500, TID
     Route: 048
     Dates: start: 20160402, end: 20160416
  5. METAMIZOL [Concomitant]
     Active Substance: METAMIZOLE SODIUM
  6. CUBICIN [Suspect]
     Active Substance: DAPTOMYCIN
     Indication: ARTHRITIS INFECTIVE
     Dosage: DOSE: 500, QD
     Dates: start: 20160416, end: 20170517
  7. NAPROXEN. [Concomitant]
     Active Substance: NAPROXEN

REACTIONS (2)
  - Pneumonia [Recovered/Resolved]
  - Eosinophilia [Recovered/Resolved]

NARRATIVE: CASE EVENT DATE: 20160504
